FAERS Safety Report 6301283-3 (Version None)
Quarter: 2009Q3

REPORT INFORMATION
  Report Type: 
  Country: None (occurrence: None)
  Receive Date: 20090805
  Receipt Date: 20090805
  Transmission Date: 20100115
  Serious: Yes (Other)
  Sender: FDA-Public Use
  Company Number: None

PATIENT
  Age: 46 Year
  Sex: Female
  Weight: 96.1626 kg

DRUGS (2)
  1. OXYCODONE HCL AND ACETAMINOPHEN [Suspect]
     Indication: BACK PAIN
     Dosage: 1 TID PO
     Route: 048
     Dates: start: 20070206, end: 20070208
  2. OXYCODONE HCL AND ACETAMINOPHEN [Suspect]
     Indication: FIBROMYALGIA
     Dosage: 1 TID PO
     Route: 048
     Dates: start: 20070206, end: 20070208

REACTIONS (2)
  - PRODUCT SUBSTITUTION ISSUE [None]
  - RASH GENERALISED [None]
